FAERS Safety Report 6148681-9 (Version None)
Quarter: 2009Q2

REPORT INFORMATION
  Report Type: 
  Country: None (occurrence: None)
  Receive Date: 20090406
  Receipt Date: 20090406
  Transmission Date: 20091009
  Serious: No
  Sender: FDA-Public Use
  Company Number: None

PATIENT
  Age: 53 Year
  Sex: Female
  Weight: 62.1428 kg

DRUGS (1)
  1. TRAMADOL HCL [Suspect]
     Indication: MIGRAINE
     Dosage: 50 TO 100 MG 6 HOURS
     Dates: start: 20090321, end: 20090321

REACTIONS (8)
  - DYSSTASIA [None]
  - FEAR [None]
  - HYPERSENSITIVITY [None]
  - IMPAIRED WORK ABILITY [None]
  - INSOMNIA [None]
  - MUSCLE TWITCHING [None]
  - PRURITUS [None]
  - RESPIRATORY RATE DECREASED [None]
